FAERS Safety Report 5017750-9 (Version None)
Quarter: 2006Q2

REPORT INFORMATION
  Report Type: 
  Country: None (occurrence: None)
  Receive Date: 20060530
  Receipt Date: 20050503
  Transmission Date: 20061013
  Serious: Yes (Other)
  Sender: FDA-Public Use
  Company Number: 2005069136

PATIENT
  Age: 20 Year
  Sex: Female

DRUGS (1)
  1. LYRICA [Suspect]
     Indication: EPILEPSY
     Dosage: 300 MG (150 MG, 2 IN 1 D), ORAL
     Route: 048

REACTIONS (3)
  - CONDITION AGGRAVATED [None]
  - MYOCLONIC EPILEPSY [None]
  - WEIGHT INCREASED [None]
